FAERS Safety Report 4878637-5 (Version None)
Quarter: 2005Q4

REPORT INFORMATION
  Report Type: 
  Country: None (occurrence: None)
  Receive Date: 20051214
  Receipt Date: 20040820
  Transmission Date: 20060501
  Serious: Yes (Hospitalization)
  Sender: FDA-Public Use
  Company Number: D-04-043

PATIENT
  Sex: Male
  Weight: 90.7194 kg

DRUGS (7)
  1. JANTOVEN [Suspect]
     Indication: ANTICOAGULANT THERAPY
     Dosage: 5 MG QD PO
     Route: 048
     Dates: start: 20040501, end: 20040601
  2. LIPITOR (CONTIN) [Concomitant]
  3. PLAVIX (CONTIN) [Concomitant]
  4. ACTOS (CONTIN) [Concomitant]
  5. MONOPRIL (CONTIN) [Concomitant]
  6. NORVASC (CONTIN) [Concomitant]
  7. TOPROL (CONTIN) [Concomitant]

REACTIONS (1)
  - INTERNATIONAL NORMALISED RATIO INCREASED [None]
